FAERS Safety Report 25249700 (Version 3)
Quarter: 2025Q4

REPORT INFORMATION
  Report Type: Report from Study
  Country: US (occurrence: US)
  Receive Date: 20250429
  Receipt Date: 20251111
  Transmission Date: 20260117
  Serious: Yes (Hospitalization, Other)
  Sender: TAKEDA
  Company Number: US-TAKEDA-2025TUS039018

PATIENT
  Age: 58 Year
  Sex: Female

DRUGS (3)
  1. LANADELUMAB [Suspect]
     Active Substance: LANADELUMAB
     Indication: Hereditary angioedema
     Dosage: 300 MILLIGRAM, Q2WEEKS
  2. LANADELUMAB [Suspect]
     Active Substance: LANADELUMAB
     Indication: Immune system disorder
     Dosage: UNK UNK, Q2WEEKS
     Dates: end: 20251105
  3. LANADELUMAB [Suspect]
     Active Substance: LANADELUMAB

REACTIONS (6)
  - Partial seizures [Unknown]
  - Systemic lupus erythematosus [Unknown]
  - Blood sodium decreased [Unknown]
  - Drug ineffective [Not Recovered/Not Resolved]
  - Hereditary angioedema [Not Recovered/Not Resolved]
  - Drug level abnormal [Unknown]

NARRATIVE: CASE EVENT DATE: 20250422
